FAERS Safety Report 25363018 (Version 1)
Quarter: 2025Q2

REPORT INFORMATION
  Report Type: Spontaneous
  Country: GB (occurrence: US)
  Receive Date: 20250527
  Receipt Date: 20250527
  Transmission Date: 20250716
  Serious: Yes (Hospitalization, Other)
  Sender: MYLAN
  Company Number: GB-RP-045256

PATIENT
  Age: 41 Year
  Sex: Male

DRUGS (12)
  1. TAMOXIFEN [Suspect]
     Active Substance: TAMOXIFEN
     Indication: Hormone replacement therapy
  2. TAMOXIFEN [Suspect]
     Active Substance: TAMOXIFEN
     Route: 048
  3. TAMOXIFEN [Suspect]
     Active Substance: TAMOXIFEN
     Route: 048
  4. TAMOXIFEN [Suspect]
     Active Substance: TAMOXIFEN
  5. TESTOSTERONE [Concomitant]
     Active Substance: TESTOSTERONE
     Indication: Hormone replacement therapy
     Dosage: 125 MILLIGRAM, QW
  6. TESTOSTERONE [Concomitant]
     Active Substance: TESTOSTERONE
     Dosage: 125 MILLIGRAM, QW
     Route: 030
  7. TESTOSTERONE [Concomitant]
     Active Substance: TESTOSTERONE
     Dosage: 125 MILLIGRAM, QW
     Route: 030
  8. TESTOSTERONE [Concomitant]
     Active Substance: TESTOSTERONE
     Dosage: 125 MILLIGRAM, QW
  9. ANASTROZOLE [Concomitant]
     Active Substance: ANASTROZOLE
     Indication: Hormone replacement therapy
     Dosage: 0.8 MILLIGRAM, QW (0.25 MG WEEKLY FOR THE PAST 18 MONTHS)
  10. ANASTROZOLE [Concomitant]
     Active Substance: ANASTROZOLE
     Dosage: 0.8 MILLIGRAM, QW (0.25 MG WEEKLY FOR THE PAST 18 MONTHS)
     Route: 048
  11. ANASTROZOLE [Concomitant]
     Active Substance: ANASTROZOLE
     Dosage: 0.8 MILLIGRAM, QW (0.25 MG WEEKLY FOR THE PAST 18 MONTHS)
     Route: 048
  12. ANASTROZOLE [Concomitant]
     Active Substance: ANASTROZOLE
     Dosage: 0.8 MILLIGRAM, QW (0.25 MG WEEKLY FOR THE PAST 18 MONTHS)

REACTIONS (3)
  - Acute myocardial infarction [Unknown]
  - Cardiac ventricular thrombosis [Unknown]
  - Off label use [Unknown]
